FAERS Safety Report 9194026 (Version 1)
Quarter: 2013Q1

REPORT INFORMATION
  Report Type: Spontaneous
  Country: US (occurrence: US)
  Receive Date: 20130327
  Receipt Date: 20130327
  Transmission Date: 20140127
  Serious: Yes (Other)
  Sender: FDA-Public Use
  Company Number: US-BAXTER-2013BAX010813

PATIENT
  Sex: 0

DRUGS (3)
  1. CYCLOPHOSPHAMIDE FOR INJECTION, USP [Suspect]
     Indication: INTERSTITIAL LUNG DISEASE
     Route: 042
  2. GAMMAGARD LIQUID [Suspect]
     Indication: INTERSTITIAL LUNG DISEASE
     Route: 042
  3. CYCLOSPORINE [Suspect]
     Indication: INTERSTITIAL LUNG DISEASE
     Dosage: 2-4 MG/KG
     Route: 048

REACTIONS (1)
  - Candida pneumonia [Unknown]
